FAERS Safety Report 7573999-2 (Version None)
Quarter: 2011Q2

REPORT INFORMATION
  Report Type: 
  Country: None (occurrence: None)
  Receive Date: 20110627
  Receipt Date: 20110624
  Transmission Date: 20111010
  Serious: Yes (Death)
  Sender: FDA-Public Use
  Company Number: US-B.I. PHARMACEUTICALS,INC./RIDGEFIELD-2011-BP-15589BP

PATIENT
  Age: 61 Year
  Sex: Female

DRUGS (11)
  1. SIMVASTATIN [Concomitant]
     Indication: BLOOD CHOLESTEROL INCREASED
  2. CYMBALTA [Concomitant]
     Indication: FIBROMYALGIA
  3. ENJUVIA [Concomitant]
     Indication: HORMONE REPLACEMENT THERAPY
  4. ALLEGRA [Concomitant]
     Indication: MULTIPLE ALLERGIES
  5. PRADAXA [Suspect]
     Indication: ATRIAL FIBRILLATION
     Dosage: 300 MG
     Route: 048
  6. LYRICA [Concomitant]
     Indication: FIBROMYALGIA
  7. ATIVAN [Concomitant]
  8. VOLTAREN [Concomitant]
     Indication: FIBROMYALGIA
  9. DILTIAZEM [Concomitant]
     Indication: BLOOD PRESSURE
  10. PAXIL [Concomitant]
     Indication: DEPRESSION
  11. LISINOPRIL [Concomitant]
     Indication: BLOOD PRESSURE

REACTIONS (1)
  - HAEMORRHAGIC STROKE [None]
